FAERS Safety Report 5625170-9 (Version None)
Quarter: 2008Q1

REPORT INFORMATION
  Report Type: 
  Country: None (occurrence: None)
  Receive Date: 20080208
  Receipt Date: 20080201
  Transmission Date: 20080703
  Serious: Yes (Hospitalization, Other)
  Sender: FDA-Public Use
  Company Number: RENA-1000002

PATIENT
  Age: 73 Year
  Sex: Male

DRUGS (4)
  1. RENAGEL [Suspect]
     Indication: HYPERPHOSPHATAEMIA
     Dosage: 3 DF, TID, ORAL
     Route: 048
     Dates: start: 20070420, end: 20071204
  2. DIOVAN [Concomitant]
  3. BETALOC SA (METOPROLOL TARTRATE) [Concomitant]
  4. CEREMIN (GINKGO BILOBA) [Concomitant]

REACTIONS (3)
  - BLOOD UREA INCREASED [None]
  - HEPATIC CIRRHOSIS [None]
  - HEPATIC NEOPLASM MALIGNANT RECURRENT [None]
